FAERS Safety Report 5416070-8 (Version None)
Quarter: 2007Q3

REPORT INFORMATION
  Report Type: 
  Country: None (occurrence: None)
  Receive Date: 20070718
  Receipt Date: 20070307
  Transmission Date: 20080115
  Serious: Yes (Hospitalization, Other)
  Sender: FDA-Public Use
  Company Number: 2007018086

PATIENT
  Age: 51 Year
  Sex: Female
  Weight: 99.8 kg

DRUGS (1)
  1. CELEBREX [Suspect]
     Indication: PAIN IN EXTREMITY
     Dosage: 200 MG (200 MG, 1 IN 1 D)
     Dates: start: 20041115, end: 20050825

REACTIONS (2)
  - CARDIAC FAILURE [None]
  - MYOCARDIAL INFARCTION [None]
